FAERS Safety Report 15311122 (Version 3)
Quarter: 2018Q3

REPORT INFORMATION
  Report Type: Spontaneous
  Country: DE (occurrence: DE)
  Receive Date: 20180823
  Receipt Date: 20180906
  Transmission Date: 20181010
  Serious: Yes (Death, Hospitalization, Other)
  Sender: FDA-Public Use
  Company Number: DE-BRISTOL-MYERS SQUIBB COMPANY-BMS-2018-079024

PATIENT
  Age: 67 Year
  Sex: Male
  Weight: 61 kg

DRUGS (1)
  1. OPDIVO [Suspect]
     Active Substance: NIVOLUMAB
     Indication: LIP AND/OR ORAL CAVITY CANCER
     Dosage: 183 MG, UNK
     Route: 042
     Dates: start: 20180612, end: 20180710

REACTIONS (5)
  - Sepsis [Fatal]
  - General physical health deterioration [Unknown]
  - Acute respiratory failure [Fatal]
  - Malignant neoplasm progression [Fatal]
  - Hypothyroidism [Fatal]

NARRATIVE: CASE EVENT DATE: 20180626
